FAERS Safety Report 5417603-8 (Version None)
Quarter: 2007Q3

REPORT INFORMATION
  Report Type: 
  Country: None (occurrence: None)
  Receive Date: 20070718
  Receipt Date: 20061128
  Transmission Date: 20080115
  Serious: Yes (Hospitalization)
  Sender: FDA-Public Use
  Company Number: 2005124575

PATIENT
  Sex: Female

DRUGS (2)
  1. CELEBREX [Suspect]
     Indication: ILL-DEFINED DISORDER
     Dates: start: 20020201
  2. VIOXX [Suspect]
     Dates: start: 20011101

REACTIONS (3)
  - CEREBROVASCULAR ACCIDENT [None]
  - HEART INJURY [None]
  - TRANSIENT ISCHAEMIC ATTACK [None]
